FAERS Safety Report 4706725-2 (Version None)
Quarter: 2005Q2

REPORT INFORMATION
  Report Type: 
  Country: None (occurrence: None)
  Receive Date: 20050629
  Receipt Date: 20050315
  Transmission Date: 20051028
  Serious: No
  Sender: FDA-Public Use
  Company Number: 04P-163-0264158-00

PATIENT
  Age: 58 Year
  Sex: Female
  Weight: 65.7716 kg

DRUGS (12)
  1. HUMIRA [Suspect]
     Indication: RHEUMATOID ARTHRITIS
     Dosage: 40 MG, 1 IN 2 WK, SUBCUTANEOUS
     Route: 058
     Dates: start: 20040201, end: 20040401
  2. MULTI-VITAMINS [Concomitant]
  3. PROPRANOLOL HYDROCHLORIDE [Concomitant]
  4. ASPIRIN [Concomitant]
  5. METHOTREXATE [Concomitant]
  6. LOSARTAN POTASSIUM [Concomitant]
  7. SULFASALAZINE [Concomitant]
  8. DYAZIDE [Concomitant]
  9. AVANDEMENT [Concomitant]
  10. AMLODIPINE BESYLATE [Concomitant]
  11. CRESTOR [Concomitant]
  12. CLARINEX [Concomitant]

REACTIONS (1)
  - EAR INFECTION [None]
